FAERS Safety Report 7055551-0 (Version None)
Quarter: 2010Q4

REPORT INFORMATION
  Report Type: 
  Country: None (occurrence: None)
  Receive Date: 20101021
  Receipt Date: 20101019
  Transmission Date: 20110411
  Serious: Yes (Death, Hospitalization)
  Sender: FDA-Public Use
  Company Number: CZ-GENZYME-CAMP-1000008

PATIENT
  Sex: Male
  Weight: 78 kg

DRUGS (9)
  1. CAMPATH [Suspect]
     Indication: CHRONIC LYMPHOCYTIC LEUKAEMIA
     Dosage: 30 MG, QOD
     Route: 058
     Dates: start: 20071126, end: 20080104
  2. SUMETROLIM [Concomitant]
     Indication: PROPHYLAXIS
     Dosage: 1920 MG, QOD
     Route: 048
     Dates: start: 20071126
  3. DALTEPARIN SODIUM [Concomitant]
     Indication: ATRIAL FIBRILLATION
     Dosage: UNK IU, UNK
     Route: 058
     Dates: start: 20071221
  4. ACICLOVIR [Concomitant]
     Indication: PROPHYLAXIS
     Dosage: 800 UNK, UNK
     Route: 048
     Dates: start: 20071126, end: 20080111
  5. SANDNORM [Concomitant]
     Indication: PRODUCT USED FOR UNKNOWN INDICATION
     Dosage: 1 MG, QD
  6. ZOVIRAX [Concomitant]
     Indication: PRODUCT USED FOR UNKNOWN INDICATION
     Dosage: 200 MG, BID
  7. MILURIT [Concomitant]
     Indication: PRODUCT USED FOR UNKNOWN INDICATION
     Dosage: 300 MG, QD
  8. FRAGMIN [Concomitant]
     Indication: PRODUCT USED FOR UNKNOWN INDICATION
     Dosage: 2500 U, QD
     Route: 058
  9. HEPRESIN [Concomitant]
     Indication: PRODUCT USED FOR UNKNOWN INDICATION
     Dosage: UNK UNK, UNK

REACTIONS (5)
  - ATRIAL FIBRILLATION [None]
  - BRONCHOPULMONARY ASPERGILLOSIS [None]
  - ENCEPHALITIS [None]
  - FRACTURED ISCHIUM [None]
  - URINARY TRACT INFECTION [None]
